FAERS Safety Report 18907125 (Version 1)
Quarter: 2021Q1

REPORT INFORMATION
  Report Type: Other
  Country: US (occurrence: US)
  Receive Date: 20210217
  Receipt Date: 20210217
  Transmission Date: 20210420
  Serious: Yes (Other)
  Sender: FDA-Public Use
  Company Number: US-NOVEN PHARMACEUTICALS, INC.-2020US009342

PATIENT

DRUGS (1)
  1. DAYTRANA [Suspect]
     Active Substance: METHYLPHENIDATE
     Indication: PRODUCT USED FOR UNKNOWN INDICATION
     Dosage: 30MG/9 HOURS,  UNK
     Route: 062

REACTIONS (4)
  - Therapeutic product effect variable [Unknown]
  - Device difficult to use [Unknown]
  - Device issue [Unknown]
  - Incorrect dose administered by product [Unknown]
